FAERS Safety Report 5150883-5 (Version None)
Quarter: 2006Q4

REPORT INFORMATION
  Report Type: 
  Country: None (occurrence: None)
  Receive Date: 20061114
  Receipt Date: 20060410
  Transmission Date: 20070319
  Serious: Yes (Death, Life-Threatening, Hospitalization)
  Sender: FDA-Public Use
  Company Number: GR-ELI_LILLY_AND_COMPANY-GR200604001686

PATIENT
  Age: 76 Year
  Sex: Male
  Weight: 85 kg

DRUGS (3)
  1. PEMETREXED [Suspect]
     Indication: NON-SMALL CELL LUNG CANCER
     Dosage: UNK, DAY 1
     Route: 042
     Dates: start: 20060308, end: 20060308
  2. FUCIDIN /SCH/ [Concomitant]
     Indication: SOFT TISSUE INFECTION
     Dosage: 500 MG, 4/D
     Route: 048
     Dates: start: 20060302, end: 20060312
  3. ZOMETA [Concomitant]
     Indication: BONE PAIN
     Route: 042
     Dates: start: 20060208

REACTIONS (5)
  - ERYTHEMA MULTIFORME [None]
  - JAUNDICE [None]
  - MALIGNANT NEOPLASM PROGRESSION [None]
  - NEUTROPENIA [None]
  - THROMBOCYTOPENIA [None]
